FAERS Safety Report 21211262 (Version 1)
Quarter: 2022Q3

REPORT INFORMATION
  Report Type: Spontaneous
  Country: CA (occurrence: CA)
  Receive Date: 20220815
  Receipt Date: 20220815
  Transmission Date: 20221026
  Serious: Yes (Other)
  Sender: FDA-Public Use
  Company Number: None

PATIENT
  Age: 34 Year
  Sex: Male

DRUGS (1)
  1. METHOTREXATE [Suspect]
     Active Substance: METHOTREXATE
     Indication: Product used for unknown indication

REACTIONS (8)
  - Crohn^s disease [Unknown]
  - Condition aggravated [Unknown]
  - Dizziness [Unknown]
  - Drug intolerance [Unknown]
  - Fatigue [Unknown]
  - Hepatic enzyme decreased [Unknown]
  - Liver disorder [Unknown]
  - Pyrexia [Unknown]
